FAERS Safety Report 7592125-7 (Version None)
Quarter: 2011Q3

REPORT INFORMATION
  Report Type: 
  Country: None (occurrence: None)
  Receive Date: 20110706
  Receipt Date: 20110622
  Transmission Date: 20111222
  Serious: Yes (Hospitalization, Other)
  Sender: FDA-Public Use
  Company Number: US-ELI_LILLY_AND_COMPANY-US200910005554

PATIENT
  Sex: Female
  Weight: 96.599 kg

DRUGS (15)
  1. GABAPENTIN [Concomitant]
     Dosage: 300 MG, BID
  2. LIDODERM [Concomitant]
  3. BYETTA [Suspect]
     Dosage: UNK, UNKNOWN
     Route: 065
     Dates: start: 20070914, end: 20080527
  4. SERTRALINE HYDROCHLORIDE [Concomitant]
     Indication: DEPRESSION
  5. ALLEGRA [Concomitant]
     Dosage: 180 MG, QD
  6. TRICOR [Concomitant]
     Dosage: 145 MG, QD
  7. FLEXERIL [Concomitant]
  8. LORTAB [Concomitant]
  9. ASPIRIN [Concomitant]
     Dosage: 81 MG, QD
  10. LEVOTHYROXINE SODIUM [Concomitant]
     Dosage: 25 UG, QD
  11. GLUCOVANCE [Concomitant]
     Dosage: UNK
  12. IBUPROFEN [Concomitant]
     Dosage: 800 MG, BID
  13. NORVASC [Concomitant]
     Dosage: 5 MG, QD
  14. PROTONIX [Concomitant]
     Dosage: 40 MG, QD
  15. LORAZEPAM [Concomitant]
     Dosage: 0.5 MG, TID

REACTIONS (1)
  - PANCREATITIS ACUTE [None]
